FAERS Safety Report 6044974-4 (Version None)
Quarter: 2009Q1

REPORT INFORMATION
  Report Type: 
  Country: None (occurrence: None)
  Receive Date: 20090116
  Receipt Date: 20090116
  Transmission Date: 20090719
  Serious: Yes (Other)
  Sender: FDA-Public Use
  Company Number: None

PATIENT
  Sex: Female
  Weight: 90.7194 kg

DRUGS (2)
  1. LYRICA [Suspect]
     Indication: NEURALGIA
     Dosage: 75 MG BID PO
     Route: 048
     Dates: end: 20070301
  2. AVANDIA [Suspect]
     Indication: BLOOD GLUCOSE ABNORMAL
     Dosage: 4 MG QD PO
     Route: 048
     Dates: end: 20081001

REACTIONS (5)
  - DYSPNOEA [None]
  - ERYTHEMA [None]
  - OEDEMA PERIPHERAL [None]
  - PRURITUS [None]
  - SWELLING [None]
